FAERS Safety Report 6287923-6 (Version None)
Quarter: 2009Q3

REPORT INFORMATION
  Report Type: 
  Country: None (occurrence: None)
  Receive Date: 20090729
  Receipt Date: 20090723
  Transmission Date: 20100115
  Serious: Yes (Other)
  Sender: FDA-Public Use
  Company Number: GB-ALLERGAN-0905187US

PATIENT
  Age: 66 Year
  Sex: Female

DRUGS (7)
  1. GANFORT [Suspect]
     Indication: GLAUCOMA
     Dosage: 1 GTT, BID
     Route: 047
     Dates: start: 20090225, end: 20090318
  2. ATENOLOL [Concomitant]
     Indication: BLOOD PRESSURE INCREASED
     Dosage: 50 MG, QD
     Route: 048
  3. FOLIC ACID [Concomitant]
     Dosage: 5 MG, Q WEEK
  4. METHOTREXATE [Concomitant]
     Indication: RHEUMATOID ARTHRITIS
     Dosage: 10 MG, Q WEEK
     Route: 048
  5. OMEPRAZOLE [Concomitant]
     Dosage: 20 MG, QD
  6. PREDNISOLONE [Concomitant]
     Indication: RHEUMATOID ARTHRITIS
     Dosage: 4 MG, QD
     Route: 048
  7. RISEDRONIC ACID [Concomitant]
     Indication: PROPHYLAXIS
     Dosage: 35 MG, QD
     Route: 048

REACTIONS (5)
  - ANXIETY [None]
  - CONFUSIONAL STATE [None]
  - DELIRIUM [None]
  - MEMORY IMPAIRMENT [None]
  - NIGHTMARE [None]
